FAERS Safety Report 21131796 (Version 1)
Quarter: 2022Q3

REPORT INFORMATION
  Report Type: Spontaneous
  Country: CN (occurrence: CN)
  Receive Date: 20220726
  Receipt Date: 20220726
  Transmission Date: 20221027
  Serious: Yes (Other)
  Sender: FDA-Public Use
  Company Number: CN-PFIZER INC-PV202200028929

PATIENT
  Age: 59 Year
  Sex: Female
  Weight: 50 kg

DRUGS (2)
  1. CELECOXIB [Suspect]
     Active Substance: CELECOXIB
     Indication: Analgesic therapy
     Dosage: 1 DF, 2X/DAY
     Route: 048
     Dates: start: 20220715, end: 20220717
  2. DIOSMIN [Suspect]
     Active Substance: DIOSMIN
     Indication: Joint effusion
     Dosage: 2 DF, 2X/DAY
     Route: 048
     Dates: start: 20220715, end: 20220717

REACTIONS (4)
  - Rash [Recovering/Resolving]
  - Pain [Recovering/Resolving]
  - Erythema [Recovering/Resolving]
  - Swelling [Recovering/Resolving]

NARRATIVE: CASE EVENT DATE: 20220716
